FAERS Safety Report 7034351-1 (Version None)
Quarter: 2010Q4

REPORT INFORMATION
  Report Type: 
  Country: None (occurrence: None)
  Receive Date: 20101008
  Receipt Date: 20100924
  Transmission Date: 20110411
  Serious: Yes (Hospitalization, Other)
  Sender: FDA-Public Use
  Company Number: PHHY2010AT63458

PATIENT
  Age: 86 Year
  Sex: Female

DRUGS (1)
  1. ZOMETA [Suspect]
     Dosage: UNK

REACTIONS (9)
  - DERMAL CYST [None]
  - DISORIENTATION [None]
  - GINGIVITIS [None]
  - HEADACHE [None]
  - PAIN [None]
  - PERIODONTITIS [None]
  - PYREXIA [None]
  - STRESS [None]
  - SWELLING [None]
